FAERS Safety Report 13843768 (Version 1)
Quarter: 2017Q3

REPORT INFORMATION
  Report Type: Spontaneous
  Country: US (occurrence: US)
  Receive Date: 20170808
  Receipt Date: 20170808
  Transmission Date: 20171127
  Serious: No
  Sender: FDA-Public Use
  Company Number: US-ASTRAZENECA-2017SE80374

PATIENT
  Age: 29 Year
  Sex: Male
  Weight: 104.3 kg

DRUGS (4)
  1. BENZATROPINE MESILATE [Interacting]
     Active Substance: BENZTROPINE
     Dosage: UNKNOWN
     Route: 065
  2. FLUOXETINE HYDROCHLORIDE. [Concomitant]
     Active Substance: FLUOXETINE HYDROCHLORIDE
     Indication: SCHIZOPHRENIA
  3. NEXIUM 24HR [Suspect]
     Active Substance: ESOMEPRAZOLE MAGNESIUM
     Indication: GASTROOESOPHAGEAL REFLUX DISEASE
     Route: 048
     Dates: start: 20170717, end: 20170730
  4. RISPERIDONE. [Concomitant]
     Active Substance: RISPERIDONE
     Indication: SCHIZOPHRENIA
     Dosage: UNKNOWN

REACTIONS (10)
  - Drug interaction [Unknown]
  - Abdominal discomfort [Recovering/Resolving]
  - Nausea [Recovering/Resolving]
  - Somnolence [Unknown]
  - Vomiting [Recovered/Resolved]
  - Product use complaint [Unknown]
  - Lethargy [Recovering/Resolving]
  - Hypersomnia [Unknown]
  - Drug ineffective [Unknown]
  - Dizziness [Recovering/Resolving]

NARRATIVE: CASE EVENT DATE: 2017
